FAERS Safety Report 20082728 (Version 1)
Quarter: 2021Q4

REPORT INFORMATION
  Report Type: Spontaneous
  Country: US (occurrence: US)
  Receive Date: 20211117
  Receipt Date: 20211117
  Transmission Date: 20220303
  Serious: Yes (Other)
  Sender: FDA-Public Use
  Company Number: US-ELI_LILLY_AND_COMPANY-US202111003951

PATIENT
  Age: 49 Year
  Sex: Female

DRUGS (1)
  1. TADALAFIL [Suspect]
     Active Substance: TADALAFIL
     Indication: Pulmonary arterial pressure increased
     Dosage: UNK UNK, UNKNOWN
     Route: 065
     Dates: start: 201911

REACTIONS (2)
  - Scleroderma [Recovering/Resolving]
  - Gastrooesophageal reflux disease [Unknown]
